FAERS Safety Report 8472868-3 (Version None)
Quarter: 2012Q2

REPORT INFORMATION
  Report Type: 
  Country: None (occurrence: None)
  Receive Date: 20120627
  Receipt Date: 20110713
  Transmission Date: 20120825
  Serious: No
  Sender: FDA-Public Use
  Company Number: US-MYLANLABS-2011S1014769

PATIENT
  Age: 56 Year
  Sex: Female

DRUGS (1)
  1. OMEPRAZOLE [Suspect]
     Indication: GASTROOESOPHAGEAL REFLUX DISEASE
     Route: 048
     Dates: start: 20110427, end: 20110401

REACTIONS (2)
  - REACTION TO DRUG EXCIPIENTS [None]
  - ORAL MUCOSAL BLISTERING [None]
